FAERS Safety Report 4309148-3 (Version None)
Quarter: 2004Q1

REPORT INFORMATION
  Report Type: 
  Country: None (occurrence: None)
  Receive Date: 20040301
  Receipt Date: 20040217
  Transmission Date: 20041129
  Serious: Yes (Other)
  Sender: FDA-Public Use
  Company Number: US-JNJFOC-20030602863

PATIENT
  Age: 79 Year
  Sex: Female
  Weight: 53.0709 kg

DRUGS (10)
  1. REMICADE [Suspect]
     Indication: PSORIATIC ARTHROPATHY
     Dosage: 200 MG, INTRAVENOUS
     Route: 042
     Dates: start: 20030314
  2. REMICADE [Suspect]
     Indication: RHEUMATOID ARTHRITIS
     Dosage: 200 MG, INTRAVENOUS
     Route: 042
     Dates: start: 20030314
  3. REMICADE [Suspect]
     Indication: PSORIATIC ARTHROPATHY
     Dosage: 200 MG, INTRAVENOUS
     Route: 042
     Dates: start: 20030328
  4. REMICADE [Suspect]
     Indication: RHEUMATOID ARTHRITIS
     Dosage: 200 MG, INTRAVENOUS
     Route: 042
     Dates: start: 20030328
  5. REMICADE [Suspect]
     Indication: PSORIATIC ARTHROPATHY
     Dosage: 200 MG, INTRAVENOUS
     Route: 042
     Dates: start: 20030425
  6. REMICADE [Suspect]
     Indication: RHEUMATOID ARTHRITIS
     Dosage: 200 MG, INTRAVENOUS
     Route: 042
     Dates: start: 20030425
  7. DELOBID (DIFLUNISAL) [Concomitant]
  8. UNITHROID (NOVOTHYRAL) [Concomitant]
  9. LEVOTHYROID (LEVOTHYROXINE) [Concomitant]
  10. LOVASTATIN [Concomitant]

REACTIONS (3)
  - CHEST X-RAY ABNORMAL [None]
  - DYSPNOEA [None]
  - MYCOBACTERIUM AVIUM COMPLEX INFECTION [None]
